FAERS Safety Report 12507592 (Version 8)
Quarter: 2019Q4

REPORT INFORMATION
  Report Type: Spontaneous
  Country: US (occurrence: US)
  Receive Date: 20160629
  Receipt Date: 20191126
  Transmission Date: 20200122
  Serious: Yes (Hospitalization, Congenital Anomaly, Other)
  Sender: FDA-Public Use
  Company Number: PHHY2015US130880

PATIENT
  Sex: Female

DRUGS (2)
  1. ONDANSETRON HYDROCHLORIDE. [Suspect]
     Active Substance: ONDANSETRON HYDROCHLORIDE
     Indication: FOETAL EXPOSURE DURING PREGNANCY
     Dosage: MOTHER^S DOSE: 1 DF, Q6H
     Route: 064
  2. ZOFRAN [Suspect]
     Active Substance: ONDANSETRON HYDROCHLORIDE
     Indication: FOETAL EXPOSURE DURING PREGNANCY
     Route: 064

REACTIONS (16)
  - Cleft lip and palate [Unknown]
  - Amniotic band syndrome [Unknown]
  - Foetal exposure during pregnancy [Unknown]
  - Radial head dislocation [Unknown]
  - Congenital anomaly [Unknown]
  - Speech disorder [Unknown]
  - Injury [Unknown]
  - Emotional distress [Unknown]
  - Pain [Unknown]
  - Anxiety [Unknown]
  - Craniofacial deformity [Unknown]
  - Autism spectrum disorder [Unknown]
  - Congenital nose malformation [Unknown]
  - Upper respiratory tract infection [Unknown]
  - Otitis media [Unknown]
  - Dermatitis atopic [Unknown]
